FAERS Safety Report 11422811 (Version 1)
Quarter: 2015Q3

REPORT INFORMATION
  Report Type: Spontaneous
  Country: US (occurrence: None)
  Receive Date: 20150826
  Receipt Date: 20150826
  Transmission Date: 20151125
  Serious: Yes (Life-Threatening, Other)
  Sender: FDA-Public Use
  Company Number: None

PATIENT
  Age: 53 Year
  Sex: Female
  Weight: 108.86 kg

DRUGS (9)
  1. CYMBALTA [Concomitant]
     Active Substance: DULOXETINE HYDROCHLORIDE
  2. VIACTIV CALCIUM [Concomitant]
  3. HYDROCHLOROTHIAZIDE. [Suspect]
     Active Substance: HYDROCHLOROTHIAZIDE
     Indication: HEART RATE
     Dosage: YEARS
  4. HYDROCHLOROTHIAZIDE. [Suspect]
     Active Substance: HYDROCHLOROTHIAZIDE
     Indication: BLOOD PRESSURE MEASUREMENT
     Dosage: YEARS
  5. METOPROLOL [Concomitant]
     Active Substance: METOPROLOL
  6. BABY ASPIRIN [Concomitant]
     Active Substance: ASPIRIN
  7. FLINSTONE VITAMINS [Concomitant]
  8. CLOPIDOGREL [Suspect]
     Active Substance: CLOPIDOGREL BISULFATE
  9. AROMASIN [Concomitant]
     Active Substance: EXEMESTANE

REACTIONS (4)
  - Wrong drug administered [None]
  - Drug dispensing error [None]
  - Cardiac failure congestive [None]
  - Drug ineffective [None]

NARRATIVE: CASE EVENT DATE: 20150702
